FAERS Safety Report 6346544-7 (Version None)
Quarter: 2009Q3

REPORT INFORMATION
  Report Type: 
  Country: None (occurrence: None)
  Receive Date: 20090909
  Receipt Date: 20090903
  Transmission Date: 20100115
  Serious: Yes (Other)
  Sender: FDA-Public Use
  Company Number: US-ASTRAZENECA-2009SE11241

PATIENT
  Sex: Female

DRUGS (3)
  1. SYMBICORT [Suspect]
     Route: 055
     Dates: start: 20090810
  2. ALBUTEROL [Concomitant]
  3. NEBULIZER [Concomitant]

REACTIONS (1)
  - SCLERODERMA [None]
